FAERS Safety Report 16477675 (Version 3)
Quarter: 2019Q3

REPORT INFORMATION
  Report Type: Spontaneous
  Country: US (occurrence: US)
  Receive Date: 20190626
  Receipt Date: 20190819
  Transmission Date: 20191004
  Serious: No
  Sender: FDA-Public Use
  Company Number: US-BAYER-2019-121072

PATIENT
  Age: 78 Year
  Sex: Female
  Weight: 81 kg

DRUGS (1)
  1. ALEVE PM [Suspect]
     Active Substance: DIPHENHYDRAMINE HYDROCHLORIDE\NAPROXEN SODIUM
     Dosage: 2 DF, BID
     Route: 048
     Dates: start: 20190624, end: 2019

REACTIONS (7)
  - Product commingling [None]
  - Fatigue [Unknown]
  - Insomnia [Unknown]
  - Vomiting [Unknown]
  - Malaise [Recovered/Resolved]
  - Expired product administered [None]
  - Drug ineffective [Unknown]

NARRATIVE: CASE EVENT DATE: 20190624
